FAERS Safety Report 9411539 (Version 2)
Quarter: 2013Q3

REPORT INFORMATION
  Report Type: Spontaneous
  Country: US (occurrence: US)
  Receive Date: 20130722
  Receipt Date: 20130819
  Transmission Date: 20140515
  Serious: Yes (Death)
  Sender: FDA-Public Use
  Company Number: US-ASTELLAS-2013US007678

PATIENT
  Age: 73 Year
  Sex: Female

DRUGS (1)
  1. PROGRAF [Suspect]
     Indication: RENAL TRANSPLANT
     Dosage: 2 CAPSULES IN MORNING, 3 CAPSULES IN EVENING
     Route: 048
     Dates: start: 20080509

REACTIONS (1)
  - Death [Fatal]
